FAERS Safety Report 17725396 (Version 3)
Quarter: 2020Q2

REPORT INFORMATION
  Report Type: Spontaneous
  Country: US (occurrence: US)
  Receive Date: 20200429
  Receipt Date: 20200519
  Transmission Date: 20200714
  Serious: Yes (Hospitalization)
  Sender: FDA-Public Use
  Company Number: US-PFIZER INC-2019444146

PATIENT
  Age: 54 Year
  Sex: Female
  Weight: 93.8 kg

DRUGS (4)
  1. XELJANZ XR [Suspect]
     Active Substance: TOFACITINIB CITRATE
     Indication: OSTEOARTHRITIS
  2. METHOTREXATE. [Concomitant]
     Active Substance: METHOTREXATE
     Dosage: 2 DF, WEEKLY
  3. XELJANZ XR [Suspect]
     Active Substance: TOFACITINIB CITRATE
     Indication: ARTHRITIS
  4. XELJANZ XR [Suspect]
     Active Substance: TOFACITINIB CITRATE
     Indication: RHEUMATOID ARTHRITIS
     Dosage: 11 MG, DAILY (IN THE MORNING)
     Route: 048
     Dates: start: 201906

REACTIONS (3)
  - Stress cardiomyopathy [Recovered/Resolved]
  - Weight increased [Unknown]
  - Contusion [Unknown]

NARRATIVE: CASE EVENT DATE: 202004
